FAERS Safety Report 11427791 (Version 1)
Quarter: 2015Q3

REPORT INFORMATION
  Report Type: Spontaneous
  Country: AU (occurrence: None)
  Receive Date: 20150826
  Receipt Date: 20150826
  Transmission Date: 20151125
  Serious: Yes (Hospitalization)
  Sender: FDA-Public Use
  Company Number: 2015PL000178

PATIENT
  Age: 51 Year
  Sex: Female

DRUGS (4)
  1. ALLOPURINOL (ALLOPURINOL) TABLET [Suspect]
     Active Substance: ALLOPURINOL
     Indication: PRODUCT USED FOR UNKNOWN INDICATION
  2. PANTOPRAZOLE [Concomitant]
     Active Substance: PANTOPRAZOLE SODIUM
  3. VITAMIN D (ERGOCALCIFEROL) [Concomitant]
     Active Substance: ERGOCALCIFEROL
  4. PERINDOPRIL [Concomitant]
     Active Substance: PERINDOPRIL

REACTIONS (19)
  - Drug reaction with eosinophilia and systemic symptoms [None]
  - Haemodynamic instability [None]
  - Septic shock [None]
  - Thrombocytopenia [None]
  - Condition aggravated [None]
  - Renal impairment [None]
  - Pleural effusion [None]
  - Renal tubular necrosis [None]
  - Anuria [None]
  - Anaemia [None]
  - Congenital cystic kidney disease [None]
  - Tachycardia [None]
  - Hypotension [None]
  - Disseminated intravascular coagulation [None]
  - International normalised ratio increased [None]
  - Abdominal tenderness [None]
  - Blood pressure decreased [None]
  - Myocarditis [None]
  - Pneumonitis [None]
